FAERS Safety Report 10256149 (Version 1)
Quarter: 2014Q2

REPORT INFORMATION
  Report Type: Spontaneous
  Country: US (occurrence: US)
  Receive Date: 20140624
  Receipt Date: 20140624
  Transmission Date: 20141212
  Serious: Yes (Life-Threatening, Other)
  Sender: FDA-Public Use
  Company Number: US-ZOGENIX, INC.-2012ZX000043

PATIENT
  Age: 32 Year
  Sex: Female
  Weight: 92.16 kg

DRUGS (8)
  1. SUMAVEL DOSEPRO [Suspect]
     Indication: MIGRAINE
     Dates: start: 20120125, end: 20120125
  2. LEXAPRO [Suspect]
     Indication: ANXIETY
     Route: 048
  3. ZONEGRAN [Concomitant]
     Indication: CONVULSION
     Route: 048
  4. NEURONTIN [Concomitant]
     Indication: MYALGIA
     Route: 048
  5. NEURONTIN [Concomitant]
     Indication: CONVULSION
  6. RESTORIL [Concomitant]
     Indication: SLEEP DISORDER
  7. PEPCID [Concomitant]
     Indication: ABDOMINAL DISCOMFORT
  8. VITAMIN [Concomitant]
     Indication: PRODUCT USED FOR UNKNOWN INDICATION

REACTIONS (10)
  - Convulsion [Recovered/Resolved]
  - Dyspnoea [Recovered/Resolved]
  - Throat tightness [Recovered/Resolved]
  - Chest discomfort [Recovered/Resolved]
  - Oral discomfort [Recovered/Resolved]
  - Pruritus generalised [Recovered/Resolved]
  - Tremor [Recovered/Resolved]
  - Nausea [Recovered/Resolved]
  - Feeling abnormal [Recovered/Resolved]
  - Drug interaction [Unknown]
